FAERS Safety Report 19823832 (Version 1)
Quarter: 2021Q3

REPORT INFORMATION
  Report Type: Spontaneous
  Country: JP (occurrence: JP)
  Receive Date: 20210913
  Receipt Date: 20210913
  Transmission Date: 20211014
  Serious: Yes (Hospitalization)
  Sender: FDA-Public Use
  Company Number: JP-NKFPHARMA-2021MPLIT00047

PATIENT
  Age: 48 Year
  Sex: Male

DRUGS (1)
  1. HEPARIN SODIUM. [Suspect]
     Active Substance: HEPARIN SODIUM
     Indication: ACTIVATED PARTIAL THROMBOPLASTIN TIME ABNORMAL
     Route: 042

REACTIONS (1)
  - Spontaneous haematoma [Recovered/Resolved]
